FAERS Safety Report 9220904 (Version 2)
Quarter: 2013Q2

REPORT INFORMATION
  Report Type: Report from Study
  Country: US (occurrence: US)
  Receive Date: 20130409
  Receipt Date: 20130528
  Transmission Date: 20140414
  Serious: Yes (Other)
  Sender: FDA-Public Use
  Company Number: PHEH2012US017441

PATIENT
  Age: 70 Year
  Sex: Female
  Weight: 50.34 kg

DRUGS (13)
  1. TOBI [Suspect]
     Indication: INFECTIVE EXACERBATION OF BRONCHIECTASIS
     Dosage: 1 MG, Q12H (EVERY 12 HS FOR 28 DAYS ON, 28 DAYS OFF)
  2. TOBI [Suspect]
     Dosage: UNK
     Dates: start: 20121209
  3. TOBI [Suspect]
     Dosage: UNK
  4. ALBUTEROL [Concomitant]
     Dosage: 0.63 MG/3 NEBULIZER
  5. VASOTEC [Concomitant]
     Dosage: 2.5 MG, UNK
  6. TENEX [Concomitant]
     Dosage: 1 MG, UNK
  7. DYAZIDE [Concomitant]
     Dosage: HYDROCHLOROTHIAZIDE 37.5, TRIAMTERENE 25
  8. ZANTAC [Concomitant]
     Dosage: 75 MG, UNK
  9. TYLENOL [Concomitant]
     Dosage: 325 MG
  10. DUONEB [Concomitant]
     Dosage: UNK
  11. MUCINEX [Concomitant]
     Dosage: UNK
  12. CIPRO//CIPROFLOXACIN [Concomitant]
     Indication: RESPIRATORY DISORDER
     Dosage: 500 MG, BID
     Dates: start: 20121023
  13. AZITHROMYCIN [Concomitant]
     Dosage: UNK

REACTIONS (19)
  - Pulmonary mass [Unknown]
  - Cardiac failure [Not Recovered/Not Resolved]
  - Hypoxia [Unknown]
  - Visual impairment [Recovered/Resolved]
  - Fatigue [Recovered/Resolved]
  - Contusion [Recovered/Resolved]
  - Rhinorrhoea [Recovered/Resolved]
  - Weight increased [Unknown]
  - Obstructive airways disorder [Unknown]
  - Crepitations [Unknown]
  - Pulmonary function test abnormal [Unknown]
  - Sputum abnormal [Unknown]
  - Wheezing [Unknown]
  - Productive cough [Unknown]
  - Cough [Recovered/Resolved]
  - Haemoptysis [Recovered/Resolved]
  - Asthenia [Unknown]
  - Dyspnoea [Unknown]
  - Drug ineffective [Unknown]
